FAERS Safety Report 8592584-7 (Version None)
Quarter: 2012Q3

REPORT INFORMATION
  Report Type: 
  Country: None (occurrence: None)
  Receive Date: 20120814
  Receipt Date: 20120810
  Transmission Date: 20120928
  Serious: No
  Sender: FDA-Public Use
  Company Number: US-PFIZER INC-2012196568

PATIENT
  Sex: Female

DRUGS (2)
  1. ESTROGEN/PROGESTERONE [Suspect]
     Dosage: UNK
  2. PRISTIQ [Suspect]
     Dosage: UNK

REACTIONS (2)
  - EMOTIONAL DISORDER [None]
  - MENTAL DISORDER [None]
